FAERS Safety Report 5085219-1 (Version None)
Quarter: 2006Q3

REPORT INFORMATION
  Report Type: 
  Country: None (occurrence: None)
  Receive Date: 20060817
  Receipt Date: 20060803
  Transmission Date: 20061208
  Serious: Yes (Other)
  Sender: FDA-Public Use
  Company Number: 2005BH000715

PATIENT

DRUGS (1)
  1. SUFENTANIL CITRATE [Suspect]
     Indication: DRUG USE FOR UNKNOWN INDICATION
     Dosage: 0.025 UG; UNK; UNK

REACTIONS (2)
  - BRADYCARDIA [None]
  - PROCEDURAL COMPLICATION [None]
